FAERS Safety Report 7781899-8 (Version None)
Quarter: 2011Q3

REPORT INFORMATION
  Report Type: 
  Country: None (occurrence: None)
  Receive Date: 20110927
  Receipt Date: 20110912
  Transmission Date: 20111222
  Serious: No
  Sender: FDA-Public Use
  Company Number: US-SANOFI-AVENTIS-2011SA043481

PATIENT
  Sex: Male
  Weight: 118 kg

DRUGS (14)
  1. GLYBURIDE [Concomitant]
  2. FINASTERIDE [Concomitant]
  3. ANTINEOPLASTIC AGENTS [Concomitant]
  4. LANTUS [Suspect]
     Dosage: DOSE:32 UNIT(S)
     Route: 058
  5. HYDROCHLOROTHIAZIDE [Concomitant]
  6. RITUXAN [Concomitant]
  7. QUINAPRIL HCL [Concomitant]
  8. LANTUS [Suspect]
     Indication: TYPE 2 DIABETES MELLITUS
     Dosage: DOSE:10 UNIT(S)
     Route: 058
     Dates: start: 20070601
  9. PRILOSEC [Concomitant]
     Indication: ANTACID THERAPY
  10. TAMSULOSIN HYDROCHLORIDE [Concomitant]
  11. SOLOSTAR [Suspect]
     Indication: TYPE 2 DIABETES MELLITUS
     Dates: start: 20070601
  12. SIMVASTATIN [Concomitant]
     Dosage: AS DIRECTED
  13. FOLIC ACID [Concomitant]
  14. ASPIRIN [Concomitant]

REACTIONS (1)
  - RASH [None]
